FAERS Safety Report 16106280 (Version 5)
Quarter: 2019Q2

REPORT INFORMATION
  Report Type: Report from Study
  Country: None (occurrence: DE)
  Receive Date: 20190322
  Receipt Date: 20190420
  Transmission Date: 20190711
  Serious: Yes (Life-Threatening, Hospitalization, Other)
  Sender: FDA-Public Use
  Company Number: DE-ABBVIE-19K-062-2712633-00

PATIENT
  Age: 73 Year
  Sex: Male
  Weight: 104 kg

DRUGS (14)
  1. TOREM [Suspect]
     Active Substance: TORSEMIDE
     Indication: DIURETIC THERAPY
     Route: 048
     Dates: start: 20190220
  2. RAMIPRIL. [Suspect]
     Active Substance: RAMIPRIL
     Indication: HYPERTENSION
     Route: 048
     Dates: start: 20190220
  3. DIGIMERCK [Concomitant]
     Active Substance: DIGITOXIN
     Indication: ARRHYTHMIA
  4. ELIQUIS [Suspect]
     Active Substance: APIXABAN
     Indication: ATRIAL FIBRILLATION
     Route: 048
     Dates: start: 20190220
  5. RAMIPRIL COMP [Concomitant]
     Active Substance: HYDROCHLOROTHIAZIDE\RAMIPRIL
     Indication: PRODUCT USED FOR UNKNOWN INDICATION
     Dates: start: 201902, end: 2019
  6. PROCORALAN [Concomitant]
     Active Substance: IVABRADINE
     Indication: PRODUCT USED FOR UNKNOWN INDICATION
     Route: 065
  7. ENSTILAR [Concomitant]
     Active Substance: BETAMETHASONE DIPROPIONATE\CALCIPOTRIENE HYDRATE
     Indication: PRODUCT USED FOR UNKNOWN INDICATION
     Route: 058
     Dates: start: 20180730
  8. SIMVASTATIN. [Suspect]
     Active Substance: SIMVASTATIN
     Indication: PRODUCT USED FOR UNKNOWN INDICATION
     Route: 048
     Dates: start: 20190220
  9. SPIRONOLACTON [Concomitant]
     Active Substance: SPIRONOLACTONE
     Indication: CARDIAC FAILURE
     Route: 048
     Dates: start: 201902
  10. SIMVA [Concomitant]
     Active Substance: SIMVASTATIN
     Indication: HYPERCHOLESTEROLAEMIA
     Route: 048
     Dates: start: 201902
  11. NITRENDIPIN [Concomitant]
     Active Substance: NITRENDIPINE
     Indication: PRODUCT USED FOR UNKNOWN INDICATION
  12. HUMIRA [Suspect]
     Active Substance: ADALIMUMAB
     Indication: PSORIASIS
     Route: 058
     Dates: start: 20180928, end: 20190208
  13. DIGIMERCK [Concomitant]
     Active Substance: DIGITOXIN
     Indication: ARRHYTHMIA
     Route: 048
     Dates: start: 201902
  14. PANTOPRAZOLE [Concomitant]
     Active Substance: PANTOPRAZOLE
     Indication: PROPHYLAXIS
     Route: 048
     Dates: start: 201902

REACTIONS (26)
  - Emphysema [Unknown]
  - Osteochondrosis [Unknown]
  - Kyphosis [Unknown]
  - Flatulence [Unknown]
  - Pericardial effusion [Unknown]
  - Cardiac dysfunction [Recovered/Resolved]
  - Myocardial fibrosis [Unknown]
  - Chills [Recovered/Resolved]
  - Spinal osteoarthritis [Unknown]
  - Atrial fibrillation [Not Recovered/Not Resolved]
  - Splenomegaly [Unknown]
  - Dyspnoea exertional [Recovering/Resolving]
  - Hypercholesterolaemia [Unknown]
  - Chills [Recovered/Resolved]
  - Cardiomegaly [Unknown]
  - Hyperlipidaemia [Unknown]
  - Vertigo [Recovered/Resolved]
  - Dyspnoea exertional [Recovered/Resolved]
  - Vertigo [Recovered/Resolved]
  - Seizure [Recovered/Resolved]
  - Chills [Recovering/Resolving]
  - Cardiac failure [Unknown]
  - Abdominal pain [Unknown]
  - Dyspnoea [Recovered/Resolved]
  - Seizure [Recovered/Resolved]
  - Chest X-ray abnormal [Unknown]

NARRATIVE: CASE EVENT DATE: 20181218
